FAERS Safety Report 4373863-6 (Version None)
Quarter: 2004Q1

REPORT INFORMATION
  Report Type: 
  Country: None (occurrence: None)
  Receive Date: 20040305
  Receipt Date: 20040121
  Transmission Date: 20041129
  Serious: Yes (Other)
  Sender: FDA-Public Use
  Company Number: 2004UW01092

PATIENT
  Age: 84 Year
  Sex: Female
  Weight: 82.5547 kg

DRUGS (7)
  1. CRESTOR [Suspect]
     Indication: HYPERCHOLESTEROLAEMIA
     Dosage: 10 MG QD PO
     Route: 048
  2. TIAZAC [Concomitant]
  3. PLAVIX [Concomitant]
  4. ATACAND [Concomitant]
  5. BUSPAR [Concomitant]
  6. ZANTAC [Concomitant]
  7. ASPIRIN [Concomitant]

REACTIONS (1)
  - ALOPECIA [None]
